FAERS Safety Report 9511313 (Version 1)
Quarter: 2013Q3

REPORT INFORMATION
  Report Type: Spontaneous
  Country: BR (occurrence: BR)
  Receive Date: 20130910
  Receipt Date: 20130910
  Transmission Date: 20140515
  Serious: Yes (Other)
  Sender: FDA-Public Use
  Company Number: BR-GENZYME-CERZ-1003159

PATIENT
  Sex: Female

DRUGS (2)
  1. CEREZYME [Suspect]
     Indication: GAUCHER^S DISEASE
     Dosage: 13 VIALS
     Route: 042
     Dates: start: 20080101
  2. CEREZYME [Suspect]
     Dosage: 26 VIALS
     Route: 042

REACTIONS (1)
  - Multiple fractures [Unknown]
